FAERS Safety Report 8390429-1 (Version None)
Quarter: 2012Q2

REPORT INFORMATION
  Report Type: 
  Country: None (occurrence: None)
  Receive Date: 20120522
  Receipt Date: 20120508
  Transmission Date: 20120825
  Serious: Yes (Other)
  Sender: FDA-Public Use
  Company Number: 2012SP002748

PATIENT
  Age: 21 Year
  Sex: Female

DRUGS (1)
  1. IMPLANON [Suspect]
     Indication: CONTRACEPTION
     Dosage: 1 DF
     Dates: start: 20090204, end: 20090520

REACTIONS (5)
  - ANAEMIA [None]
  - MENOMETRORRHAGIA [None]
  - MOOD ALTERED [None]
  - DEPRESSION [None]
  - PARANOIA [None]
